FAERS Safety Report 25046162 (Version 1)
Quarter: 2025Q1

REPORT INFORMATION
  Report Type: Spontaneous
  Country: US (occurrence: US)
  Receive Date: 20250306
  Receipt Date: 20250306
  Transmission Date: 20250409
  Serious: Yes (Death, Other)
  Sender: FRESENIUS KABI
  Company Number: US-FreseniusKabi-FK202503562

PATIENT
  Age: 28 Year
  Sex: Female

DRUGS (5)
  1. METHYLPREDNISOLONE [Suspect]
     Active Substance: METHYLPREDNISOLONE
     Indication: Graft versus host disease
  2. RUXOLITINIB [Suspect]
     Active Substance: RUXOLITINIB
     Indication: Graft versus host disease
  3. TACROLIMUS [Suspect]
     Active Substance: TACROLIMUS
     Indication: Graft versus host disease
  4. POSACONAZOLE [Concomitant]
     Active Substance: POSACONAZOLE
     Indication: Antifungal prophylaxis
  5. MICAFUNGIN [Concomitant]
     Active Substance: MICAFUNGIN SODIUM
     Indication: Prophylaxis

REACTIONS (4)
  - Pulmonary mucormycosis [Fatal]
  - Klebsiella infection [Fatal]
  - Aspergillus infection [Fatal]
  - Acute respiratory failure [Fatal]
